FAERS Safety Report 22293991 (Version 1)
Quarter: 2023Q2

REPORT INFORMATION
  Report Type: Spontaneous
  Country: US (occurrence: US)
  Receive Date: 20230508
  Receipt Date: 20230508
  Transmission Date: 20230721
  Serious: Yes (Hospitalization)
  Sender: FDA-Public Use
  Company Number: US-MYLANLABS-2023M1047342

PATIENT
  Age: 57 Year
  Sex: Male

DRUGS (4)
  1. METHADONE [Interacting]
     Active Substance: METHADONE HYDROCHLORIDE
     Indication: Oral pain
     Dosage: 5 MILLIGRAM, TID (THREE TIMES DAILY)
     Route: 048
  2. FLUCONAZOLE [Interacting]
     Active Substance: FLUCONAZOLE
     Indication: Oral candidiasis
     Dosage: UNK
     Route: 065
  3. GABAPENTIN [Concomitant]
     Active Substance: GABAPENTIN
     Indication: Oral pain
     Dosage: 100 MILLIGRAM, TID (THREE TIMES DAILY)
     Route: 048
  4. ACETAMINOPHEN\HYDROCODONE [Concomitant]
     Active Substance: ACETAMINOPHEN\HYDROCODONE
     Indication: Oral pain
     Dosage: 1 DOSAGE FORM, Q4H (EVERY 4 HOURS AS NEEDED)
     Route: 048

REACTIONS (6)
  - Myoclonus [Recovering/Resolving]
  - Mental status changes [Recovering/Resolving]
  - Insomnia [Recovering/Resolving]
  - Hallucination [Recovering/Resolving]
  - Abnormal dreams [Recovering/Resolving]
  - Labelled drug-drug interaction medication error [Recovering/Resolving]
